FAERS Safety Report 18058585 (Version 1)
Quarter: 2020Q3

REPORT INFORMATION
  Report Type: Spontaneous
  Country: FR (occurrence: FR)
  Receive Date: 20200723
  Receipt Date: 20200723
  Transmission Date: 20201103
  Serious: Yes (Hospitalization)
  Sender: FDA-Public Use
  Company Number: FR-BAUSCH-BL-2020-020413

PATIENT
  Age: 51 Year
  Sex: Female

DRUGS (1)
  1. TARGRETIN [Suspect]
     Active Substance: BEXAROTENE
     Indication: LYMPHOMA
     Route: 048
     Dates: start: 20200507, end: 20200520

REACTIONS (1)
  - Septic shock [Not Recovered/Not Resolved]

NARRATIVE: CASE EVENT DATE: 20200520
